FAERS Safety Report 22077070 (Version 2)
Quarter: 2023Q2

REPORT INFORMATION
  Report Type: Spontaneous
  Country: TR (occurrence: TR)
  Receive Date: 20230309
  Receipt Date: 20230516
  Transmission Date: 20230721
  Serious: Yes (Other)
  Sender: FDA-Public Use
  Company Number: TR-002147023-NVSC2023TR050496

PATIENT
  Age: 36 Year
  Sex: Female

DRUGS (2)
  1. SECUKINUMAB [Suspect]
     Active Substance: SECUKINUMAB
     Indication: Psoriatic arthropathy
     Dosage: UNK
     Route: 065
  2. SULFASALAZINE [Concomitant]
     Active Substance: SULFASALAZINE
     Indication: Multiple sclerosis
     Dosage: UNK (2*2 DOSE)
     Route: 065

REACTIONS (6)
  - Diarrhoea haemorrhagic [Recovered/Resolved]
  - Colitis ulcerative [Unknown]
  - Abscess intestinal [Unknown]
  - Mucosal erosion [Unknown]
  - Cryptitis [Unknown]
  - Inflammation [Unknown]

NARRATIVE: CASE EVENT DATE: 20190501
